FAERS Safety Report 24055141 (Version 5)
Quarter: 2024Q3

REPORT INFORMATION
  Report Type: Spontaneous
  Country: GB (occurrence: GB)
  Receive Date: 20240705
  Receipt Date: 20240920
  Transmission Date: 20241016
  Serious: Yes (Hospitalization, Other)
  Sender: BAYER
  Company Number: GB-BAYER-2024A094719

PATIENT
  Age: 33 Year
  Sex: Female

DRUGS (1)
  1. MIRENA [Suspect]
     Active Substance: LEVONORGESTREL
     Dosage: 20?G/DAY
     Route: 015
     Dates: start: 2021, end: 202305

REACTIONS (9)
  - Blood loss anaemia [None]
  - Uterine haemorrhage [None]
  - Dyspepsia [None]
  - Asherman^s syndrome [None]
  - Cholecystitis [None]
  - Gallbladder disorder [None]
  - Infertility [None]
  - Malaise [None]
  - Cold type haemolytic anaemia [None]

NARRATIVE: CASE EVENT DATE: 20230101
